FAERS Safety Report 9329666 (Version 2)
Quarter: 2013Q3

REPORT INFORMATION
  Report Type: Spontaneous
  Country: US (occurrence: US)
  Receive Date: 20130604
  Receipt Date: 20130710
  Transmission Date: 20140515
  Serious: No
  Sender: FDA-Public Use
  Company Number: US-ASTRAZENECA-2013SE34224

PATIENT
  Age: 65 Year
  Sex: Male
  Weight: 78.9 kg

DRUGS (5)
  1. CRESTOR [Suspect]
     Indication: BLOOD CHOLESTEROL ABNORMAL
     Route: 048
     Dates: start: 2012
  2. VALSARTAN HCT [Concomitant]
     Indication: HYPERTENSION
     Dosage: 160/12.5 MG DAILY
  3. PLAVIX [Concomitant]
     Indication: THROMBOSIS IN DEVICE
  4. AMLODIPINE [Concomitant]
     Indication: HYPERTENSION
  5. CARVEDILOL [Concomitant]
     Indication: HYPERTENSION

REACTIONS (4)
  - Weight decreased [Unknown]
  - Blood cholesterol increased [Unknown]
  - Drug ineffective [Unknown]
  - Counterfeit drug administered [Unknown]
